FAERS Safety Report 7505324-7 (Version None)
Quarter: 2011Q2

REPORT INFORMATION
  Report Type: 
  Country: None (occurrence: None)
  Receive Date: 20110518
  Receipt Date: 20110510
  Transmission Date: 20111010
  Serious: Yes (Other)
  Sender: FDA-Public Use
  Company Number: 2011SP021261

PATIENT
  Sex: Male
  Weight: 100 kg

DRUGS (4)
  1. HYDROCORTISONE [Concomitant]
  2. LEVOTHYROXINE SODIUM [Concomitant]
  3. REANDRON [Concomitant]
  4. CHORIONIC GONADOTROPIN [Suspect]
     Indication: INFERTILITY MALE

REACTIONS (1)
  - BRONCHOSPASM [None]
